FAERS Safety Report 6770497-0 (Version None)
Quarter: 2010Q2

REPORT INFORMATION
  Report Type: 
  Country: None (occurrence: None)
  Receive Date: 20100615
  Receipt Date: 20100607
  Transmission Date: 20101027
  Serious: Yes (Other)
  Sender: FDA-Public Use
  Company Number: DE-BAYER-201027523GPV

PATIENT
  Age: 0 Hour
  Sex: Female
  Weight: 3.13 kg

DRUGS (1)
  1. BETAFERON [Suspect]
     Indication: MULTIPLE SCLEROSIS
     Dosage: UNIT DOSE: 1 ML
     Route: 064
     Dates: start: 20090602, end: 20090810

REACTIONS (1)
  - NO ADVERSE EVENT [None]
